FAERS Safety Report 18458060 (Version 1)
Quarter: 2020Q4

REPORT INFORMATION
  Report Type: Spontaneous
  Country: US (occurrence: US)
  Receive Date: 20201103
  Receipt Date: 20201103
  Transmission Date: 20210114
  Serious: No
  Sender: FDA-Public Use
  Company Number: US-FARMAPROD-202009-1174

PATIENT
  Sex: Female

DRUGS (11)
  1. OXERVATE [Suspect]
     Active Substance: CENEGERMIN-BKBJ
     Indication: NEUROTROPHIC KERATOPATHY
     Route: 047
     Dates: start: 20200722
  2. CENTRUM SILVER .4 [Concomitant]
     Dosage: 250-300 MG
  3. JARDIANCE [Concomitant]
     Active Substance: EMPAGLIFLOZIN
  4. ASPIRINE [Concomitant]
     Active Substance: ASPIRIN
  5. DOCUSATE SODIUM. [Concomitant]
     Active Substance: DOCUSATE SODIUM
  6. AMLODIPINE BESYLATE. [Concomitant]
     Active Substance: AMLODIPINE BESYLATE
  7. GLIPIZIDE XL [Concomitant]
     Active Substance: GLIPIZIDE
     Dosage: EXTENDED RELEASE TABLET 24H
  8. IRBESARTAN. [Concomitant]
     Active Substance: IRBESARTAN
  9. ATORVASTATIN CALCIUM. [Concomitant]
     Active Substance: ATORVASTATIN CALCIUM
  10. ATENOLOL. [Concomitant]
     Active Substance: ATENOLOL
  11. FISH OIL/VITAMINE D3 [Concomitant]
     Dosage: 360MG-1000 MG

REACTIONS (1)
  - Eye pain [Unknown]
